FAERS Safety Report 5678937-5 (Version None)
Quarter: 2008Q1

REPORT INFORMATION
  Report Type: 
  Country: None (occurrence: None)
  Receive Date: 20080325
  Receipt Date: 20080311
  Transmission Date: 20080703
  Serious: Yes (Other)
  Sender: FDA-Public Use
  Company Number: US-AVENTIS-200718370US

PATIENT
  Sex: Female

DRUGS (1)
  1. KETEK [Suspect]
     Dosage: DOSE: ^400 MG INCREMENTS^
     Dates: start: 20060101, end: 20060201

REACTIONS (3)
  - INJURY [None]
  - RASH [None]
  - SKIN CANCER [None]
